FAERS Safety Report 15439227 (Version 1)
Quarter: 2018Q3

REPORT INFORMATION
  Report Type: Spontaneous
  Country: US (occurrence: US)
  Receive Date: 20180928
  Receipt Date: 20180928
  Transmission Date: 20181010
  Serious: No
  Sender: FDA-Public Use
  Company Number: US-RECORDATI RARE DISEASES-US-R13005-17-00164

PATIENT
  Sex: Female

DRUGS (2)
  1. PANHEMATIN [Suspect]
     Active Substance: HEMIN
     Indication: PRODUCT USED FOR UNKNOWN INDICATION
     Route: 042
  2. CYSTADANE [Suspect]
     Active Substance: BETAINE
     Indication: PRODUCT USED FOR UNKNOWN INDICATION
     Route: 065

REACTIONS (3)
  - Phlebitis [Unknown]
  - Incorrect dose administered [Unknown]
  - Administration site extravasation [Unknown]

NARRATIVE: CASE EVENT DATE: 20170804
